FAERS Safety Report 7522094 (Version 4)
Quarter: 2014Q2

REPORT INFORMATION
  Report Type: Report from Study
  Country: US (occurrence: US)
  Receive Date: 20100803
  Receipt Date: 20140505
  Transmission Date: 20141212
  Serious: Yes (Hospitalization)
  Sender: FDA-Public Use
  Company Number: US-BIOGENIDEC-2010BI025493

PATIENT
  Age: 62 Year
  Sex: Female

DRUGS (7)
  1. AVONEX [Suspect]
     Indication: MULTIPLE SCLEROSIS
     Route: 030
     Dates: start: 20050805
  2. AVONEX [Suspect]
     Indication: MULTIPLE SCLEROSIS
     Route: 030
     Dates: start: 20130224
  3. LODINE [Concomitant]
  4. TRAMADOL [Concomitant]
  5. GABAPENTIN [Concomitant]
  6. BACLOFEN [Concomitant]
  7. FLUOXETINE [Concomitant]

REACTIONS (3)
  - Arthropathy [Recovered/Resolved]
  - Synovial disorder [Recovered/Resolved]
  - Post procedural infection [Unknown]
